FAERS Safety Report 10154504 (Version 1)
Quarter: 2014Q2

REPORT INFORMATION
  Report Type: Spontaneous
  Country: US (occurrence: US)
  Receive Date: 20140506
  Receipt Date: 20140506
  Transmission Date: 20141212
  Serious: No
  Sender: FDA-Public Use
  Company Number: US-PFIZER INC-2014122712

PATIENT
  Age: 40 Year
  Sex: Male
  Weight: 126 kg

DRUGS (2)
  1. GABAPENTIN [Suspect]
     Indication: BACK PAIN
     Dosage: UNK
  2. BACLOFEN [Concomitant]
     Indication: GASTROOESOPHAGEAL REFLUX DISEASE
     Dosage: ONE 10MG TABLET IN THE MORNING AND TWO 10MG TABLETS AT NIGHT

REACTIONS (1)
  - Drug ineffective [Unknown]
